FAERS Safety Report 8329650-7 (Version None)
Quarter: 2012Q2

REPORT INFORMATION
  Report Type: 
  Country: None (occurrence: None)
  Receive Date: 20120502
  Receipt Date: 20120430
  Transmission Date: 20120825
  Serious: Yes (Hospitalization)
  Sender: FDA-Public Use
  Company Number: US-GLAXOSMITHKLINE-A0782980A

PATIENT
  Age: 61 Year
  Sex: Male
  Weight: 113.6 kg

DRUGS (12)
  1. BYETTA [Concomitant]
  2. AVALIDE [Concomitant]
  3. ARISTOCORT [Concomitant]
  4. AVAPRO [Concomitant]
  5. PRAVACHOL [Concomitant]
  6. VYTORIN [Concomitant]
  7. ATENOLOL [Concomitant]
  8. TRICOR [Concomitant]
  9. INSULIN [Concomitant]
  10. NORVASC [Concomitant]
  11. ZESTRIL [Concomitant]
  12. AVANDIA [Suspect]
     Indication: DIABETES MELLITUS
     Dosage: 8MG PER DAY
     Route: 048
     Dates: start: 20020925, end: 20070329

REACTIONS (5)
  - CARDIAC FAILURE CONGESTIVE [None]
  - MYOCARDIAL INFARCTION [None]
  - INJURY [None]
  - MYOCARDIAL ISCHAEMIA [None]
  - ISCHAEMIC CARDIOMYOPATHY [None]
